FAERS Safety Report 6346875-0 (Version None)
Quarter: 2009Q3

REPORT INFORMATION
  Report Type: 
  Country: None (occurrence: None)
  Receive Date: 20090909
  Receipt Date: 20090909
  Transmission Date: 20100115
  Serious: Yes (Hospitalization)
  Sender: FDA-Public Use
  Company Number: None

PATIENT
  Age: 57 Year
  Sex: Male
  Weight: 75.91 kg

DRUGS (2)
  1. LITHIUM [Suspect]
     Indication: BIPOLAR DISORDER
     Dosage: 300 MG BID PO
     Route: 048
     Dates: start: 20090717, end: 20090906
  2. LITHIUM [Suspect]
     Indication: MANIA
     Dosage: 300 MG BID PO
     Route: 048
     Dates: start: 20090717, end: 20090906

REACTIONS (6)
  - ABNORMAL BEHAVIOUR [None]
  - ANTIPSYCHOTIC DRUG LEVEL INCREASED [None]
  - BALANCE DISORDER [None]
  - FLUID IMBALANCE [None]
  - NAUSEA [None]
  - VOMITING [None]
